FAERS Safety Report 11571499 (Version 2)
Quarter: 2016Q4

REPORT INFORMATION
  Report Type: Spontaneous
  Country: US (occurrence: US)
  Receive Date: 20150929
  Receipt Date: 20161007
  Transmission Date: 20170206
  Serious: No
  Sender: FDA-Public Use
  Company Number: US-SA-2015SA099478

PATIENT
  Sex: Female

DRUGS (6)
  1. OXYBUTYNIN CHLORIDE. [Concomitant]
     Active Substance: OXYBUTYNIN CHLORIDE
  2. LYSTEDA [Concomitant]
     Active Substance: TRANEXAMIC ACID
  3. TRIMETHOPRIM. [Concomitant]
     Active Substance: TRIMETHOPRIM
  4. CYCLOBENZAPRINE [Concomitant]
     Active Substance: CYCLOBENZAPRINE
  5. PROMETHAZINE W/CODEINE [Concomitant]
     Active Substance: CODEINE\PROMETHAZINE
  6. AUBAGIO [Suspect]
     Active Substance: TERIFLUNOMIDE
     Indication: MULTIPLE SCLEROSIS
     Route: 048

REACTIONS (9)
  - Vomiting [Unknown]
  - Nausea [Unknown]
  - Condition aggravated [Unknown]
  - Diarrhoea [Unknown]
  - Alopecia [Unknown]
  - Fall [Unknown]
  - Paraesthesia [Unknown]
  - Contusion [Unknown]
  - Hypoaesthesia [Unknown]

NARRATIVE: CASE EVENT DATE: 201506
